FAERS Safety Report 5555218-1 (Version None)
Quarter: 2007Q4

REPORT INFORMATION
  Report Type: 
  Country: None (occurrence: None)
  Receive Date: 20071213
  Receipt Date: 20070814
  Transmission Date: 20080405
  Serious: No
  Sender: FDA-Public Use
  Company Number: US-AMGEN-KDL238759

PATIENT
  Sex: Female

DRUGS (3)
  1. ENBREL [Suspect]
     Indication: RHEUMATOID ARTHRITIS
     Route: 058
     Dates: start: 20070407, end: 20070802
  2. ENBREL [Suspect]
     Indication: DRUG USE FOR UNKNOWN INDICATION
  3. METHOTREXATE [Concomitant]
     Route: 048
     Dates: start: 20060101

REACTIONS (4)
  - BLOOD TEST ABNORMAL [None]
  - HAEMORRHOIDS [None]
  - RECTAL POLYP [None]
  - TOOTH DISORDER [None]
